FAERS Safety Report 9466507 (Version 2)
Quarter: 2013Q3

REPORT INFORMATION
  Report Type: Spontaneous
  Country: US (occurrence: US)
  Receive Date: 20130820
  Receipt Date: 20130827
  Transmission Date: 20140515
  Serious: Yes (Other)
  Sender: FDA-Public Use
  Company Number: US-TEVA-427145USA

PATIENT
  Age: 25 Year
  Sex: Female
  Weight: 54.48 kg

DRUGS (1)
  1. PARAGARD 380A [Suspect]
     Indication: CONTRACEPTION
     Route: 015
     Dates: start: 20091208, end: 20130812

REACTIONS (5)
  - Device dislocation [Recovered/Resolved]
  - Embedded device [Not Recovered/Not Resolved]
  - Medical device complication [Unknown]
  - Abdominal pain [Unknown]
  - Metrorrhagia [Unknown]
